FAERS Safety Report 17909277 (Version 3)
Quarter: 2020Q3

REPORT INFORMATION
  Report Type: Spontaneous
  Country: CH (occurrence: CH)
  Receive Date: 20200618
  Receipt Date: 20200708
  Transmission Date: 20201103
  Serious: Yes (Other)
  Sender: FDA-Public Use
  Company Number: CH-BEH-2020118628

PATIENT
  Sex: Female
  Weight: 52 kg

DRUGS (1)
  1. PRIVIGEN [Suspect]
     Active Substance: HUMAN IMMUNOGLOBULIN G
     Indication: MYASTHENIC SYNDROME
     Dosage: 90 GRAM, QMT
     Route: 042

REACTIONS (9)
  - Drug eruption [Recovered/Resolved]
  - Vertigo [Recovered/Resolved]
  - Anaphylactic reaction [Recovered/Resolved]
  - Therapy interrupted [Unknown]
  - Pruritus [Recovered/Resolved]
  - Urticaria [Recovered/Resolved]
  - Hypersensitivity [Recovered/Resolved]
  - Myasthenic syndrome [Unknown]
  - Rash [Recovered/Resolved]

NARRATIVE: CASE EVENT DATE: 2013
